FAERS Safety Report 8042544-X (Version None)
Quarter: 2012Q1

REPORT INFORMATION
  Report Type: 
  Country: None (occurrence: None)
  Receive Date: 20120112
  Receipt Date: 20120106
  Transmission Date: 20120608
  Serious: Yes (Hospitalization, Congenital Anomaly, Other)
  Sender: FDA-Public Use
  Company Number: US-PFIZER INC-2011288397

PATIENT
  Sex: Female
  Weight: 0.9 kg

DRUGS (1)
  1. ZOLOFT [Suspect]
     Dosage: UNK
     Route: 064

REACTIONS (15)
  - ASCITES [None]
  - VACTERL SYNDROME [None]
  - ANAL ATRESIA [None]
  - NEONATAL RESPIRATORY DISTRESS SYNDROME [None]
  - ATRIAL SEPTAL DEFECT [None]
  - NEPHROLITHIASIS [None]
  - PATENT DUCTUS ARTERIOSUS [None]
  - CONGENITAL SCOLIOSIS [None]
  - MATERNAL EXPOSURE TIMING UNSPECIFIED [None]
  - PREMATURE BABY [None]
  - GENITALIA EXTERNAL AMBIGUOUS [None]
  - MOTOR DEVELOPMENTAL DELAY [None]
  - CLOACAL EXSTROPHY [None]
  - HYDRONEPHROSIS [None]
  - FAILURE TO THRIVE [None]
